FAERS Safety Report 9067664 (Version 1)
Quarter: 2013Q1

REPORT INFORMATION
  Report Type: Spontaneous
  Country: US (occurrence: US)
  Receive Date: 20130128
  Receipt Date: 20130128
  Transmission Date: 20140127
  Serious: Yes (Other)
  Sender: FDA-Public Use
  Company Number: US-PFIZER INC-2013034856

PATIENT
  Age: 3 Decade
  Sex: Female
  Weight: 71 kg

DRUGS (4)
  1. NARDIL [Suspect]
     Indication: DEPRESSION
     Dosage: 15 MG, 3X/DAY
     Route: 048
  2. NARDIL [Suspect]
     Indication: PHOBIA
  3. LEVOTHYROXINE [Concomitant]
     Indication: THYROID DISORDER
     Dosage: UNK
  4. TAGAMET [Concomitant]
     Indication: ABDOMINAL DISCOMFORT
     Dosage: UNK

REACTIONS (2)
  - Ovarian cancer stage III [Unknown]
  - Pain [Unknown]
